FAERS Safety Report 9317689 (Version 1)
Quarter: 2013Q2

REPORT INFORMATION
  Report Type: Spontaneous
  Country: US (occurrence: US)
  Receive Date: 20130530
  Receipt Date: 20130530
  Transmission Date: 20140414
  Serious: No
  Sender: FDA-Public Use
  Company Number: US-GLAXOSMITHKLINE-A0977327A

PATIENT
  Age: 64 Year
  Sex: Female

DRUGS (10)
  1. VENTOLIN [Suspect]
     Indication: ASTHMA
     Dosage: 1PUFF AS REQUIRED
     Route: 055
     Dates: start: 200805
  2. KLONOPIN [Concomitant]
  3. ZINC [Concomitant]
  4. COPPER [Concomitant]
  5. VITAMIN D [Concomitant]
  6. MULTI VITAMIN [Concomitant]
  7. LEVOTHYROXINE [Concomitant]
  8. BABY ASPIRIN [Concomitant]
  9. CYMBALTA [Concomitant]
  10. DOXYCYCLINE [Concomitant]

REACTIONS (6)
  - Dyspnoea [Unknown]
  - Chest discomfort [Unknown]
  - Chest pain [Unknown]
  - Wheezing [Unknown]
  - Dyspnoea [Unknown]
  - Product quality issue [Unknown]
